FAERS Safety Report 24057881 (Version 2)
Quarter: 2024Q3

REPORT INFORMATION
  Report Type: Spontaneous
  Country: US (occurrence: US)
  Receive Date: 20240707
  Receipt Date: 20240826
  Transmission Date: 20241016
  Serious: No
  Sender: SANOFI AVENTIS
  Company Number: US-SA-SAC20240703000111

PATIENT
  Age: 60 Year
  Sex: Female
  Weight: 71.985 kg

DRUGS (1)
  1. DUPIXENT [Suspect]
     Active Substance: DUPILUMAB
     Indication: Dermatitis atopic
     Dosage: 300 MG, QOW
     Route: 058
     Dates: start: 20240515

REACTIONS (5)
  - Gastrooesophageal reflux disease [Unknown]
  - Cough [Not Recovered/Not Resolved]
  - Dry skin [Unknown]
  - Ocular hyperaemia [Unknown]
  - Eye pruritus [Unknown]

NARRATIVE: CASE EVENT DATE: 20240101
